FAERS Safety Report 5376218-0 (Version None)
Quarter: 2007Q3

REPORT INFORMATION
  Report Type: 
  Country: None (occurrence: None)
  Receive Date: 20070702
  Receipt Date: 20070618
  Transmission Date: 20080115
  Serious: Yes (Disabling)
  Sender: FDA-Public Use
  Company Number: NO-MERCK-0610NOR00006

PATIENT
  Age: 41 Year
  Sex: Male

DRUGS (10)
  1. ZOCOR [Suspect]
     Indication: HYPERCHOLESTEROLAEMIA
     Route: 048
     Dates: start: 19930901, end: 19960601
  2. ZOCOR [Suspect]
     Route: 048
     Dates: start: 19960601, end: 19980101
  3. LIPITOR [Suspect]
     Indication: HYPERCHOLESTEROLAEMIA
     Route: 048
     Dates: start: 19980101, end: 20030901
  4. LESCOL [Suspect]
     Indication: HYPERCHOLESTEROLAEMIA
     Route: 048
     Dates: start: 20030901, end: 20031001
  5. LESCOL [Suspect]
     Route: 048
     Dates: start: 20031021, end: 20040113
  6. MEVACOR [Suspect]
     Indication: HYPERCHOLESTEROLAEMIA
     Route: 048
     Dates: start: 20031001, end: 20031001
  7. ALBYL-E [Concomitant]
     Route: 048
     Dates: start: 19940101
  8. SORBANGIL [Concomitant]
     Route: 048
     Dates: start: 19940101
  9. KREDEX [Concomitant]
     Route: 048
     Dates: start: 19980201
  10. SELO-ZOK [Concomitant]
     Route: 048
     Dates: start: 19950201, end: 19980201

REACTIONS (3)
  - HEADACHE [None]
  - MYALGIA [None]
  - NERVOUS SYSTEM DISORDER [None]
